FAERS Safety Report 16632947 (Version 4)
Quarter: 2019Q3

REPORT INFORMATION
  Report Type: Report from Study
  Country: US (occurrence: US)
  Receive Date: 20190725
  Receipt Date: 20190925
  Transmission Date: 20191004
  Serious: Yes (Other)
  Sender: FDA-Public Use
  Company Number: US-JNJFOC-20190610699

PATIENT
  Age: 85 Year
  Sex: Female

DRUGS (12)
  1. AMLODIPINE BESYLATE. [Concomitant]
     Active Substance: AMLODIPINE BESYLATE
  2. CRESTOR [Concomitant]
     Active Substance: ROSUVASTATIN CALCIUM
  3. LOSARTAN POTASSIUM. [Concomitant]
     Active Substance: LOSARTAN POTASSIUM
  4. IMBRUVICA [Suspect]
     Active Substance: IBRUTINIB
     Indication: LYMPHOCYTIC LEUKAEMIA
     Route: 048
     Dates: start: 20190529
  5. CARVEDILOL. [Concomitant]
     Active Substance: CARVEDILOL
  6. ZETIA [Concomitant]
     Active Substance: EZETIMIBE
  7. PENTAZOCINE AND NALOXONE HYDROCHLORIDE [Concomitant]
  8. VITAMIN D3 [Concomitant]
     Active Substance: CHOLECALCIFEROL
  9. HYDROCHLOROTHIAZIDE. [Concomitant]
     Active Substance: HYDROCHLOROTHIAZIDE
  10. NITROGLYCERIN. [Concomitant]
     Active Substance: NITROGLYCERIN
  11. PROBIOTIC [Concomitant]
     Active Substance: PROBIOTICS NOS
  12. TYLENOL EXTRA STRENGTH [Concomitant]
     Active Substance: ACETAMINOPHEN

REACTIONS (14)
  - Angina bullosa haemorrhagica [Not Recovered/Not Resolved]
  - White blood cell count increased [Recovering/Resolving]
  - Platelet count decreased [Recovering/Resolving]
  - Arthralgia [Unknown]
  - Bone pain [Unknown]
  - Heart rate increased [Recovered/Resolved]
  - Muscle spasms [Recovering/Resolving]
  - Off label use [Unknown]
  - Frequent bowel movements [Unknown]
  - Noninfective gingivitis [Not Recovered/Not Resolved]
  - Scoliosis [Unknown]
  - Incorrect dose administered [Unknown]
  - Stomatitis [Unknown]
  - Contusion [Not Recovered/Not Resolved]

NARRATIVE: CASE EVENT DATE: 201905
